FAERS Safety Report 20536509 (Version 1)
Quarter: 2022Q1

REPORT INFORMATION
  Report Type: Spontaneous
  Country: FR (occurrence: FR)
  Receive Date: 20220302
  Receipt Date: 20220302
  Transmission Date: 20220424
  Serious: Yes (Other)
  Sender: FDA-Public Use
  Company Number: None

PATIENT
  Age: 21 Year
  Sex: Male

DRUGS (3)
  1. RISPERDAL [Suspect]
     Active Substance: RISPERIDONE
     Indication: Product used for unknown indication
     Dosage: INTENTIONAL INGESTION OF 3TABLETS IN ONE INTAKE
     Route: 048
  2. CANNABIS SATIVA SUBSP. INDICA TOP [Suspect]
     Active Substance: CANNABIS SATIVA SUBSP. INDICA TOP
     Indication: Product used for unknown indication
     Dosage: INGESTION OF 3 JOINTS
     Route: 055
  3. OXAZEPAM [Concomitant]
     Active Substance: OXAZEPAM
     Dosage: IITENTIONAL INGESTION OF 100MG IN ONE INTAKE WITH RISPERDAL
     Route: 048

REACTIONS (5)
  - Ventricular tachycardia [Unknown]
  - Extrapyramidal disorder [Unknown]
  - Intentional product misuse [Unknown]
  - Hyperhidrosis [Unknown]
  - Salivary hypersecretion [Unknown]

NARRATIVE: CASE EVENT DATE: 20210715
